FAERS Safety Report 18625080 (Version 2)
Quarter: 2021Q1

REPORT INFORMATION
  Report Type: Spontaneous
  Country: US (occurrence: US)
  Receive Date: 20201217
  Receipt Date: 20210105
  Transmission Date: 20210419
  Serious: No
  Sender: FDA-Public Use
  Company Number: US-009507513-2012USA006486

PATIENT
  Sex: Female
  Weight: 112.02 kg

DRUGS (1)
  1. NEXPLANON [Suspect]
     Active Substance: ETONOGESTREL
     Indication: CONTRACEPTION
     Dosage: 68 MILLIGRAM (1 IMPLANT) IN THE LEFT ARM, ONCE
     Route: 059
     Dates: start: 20200218, end: 20200319

REACTIONS (1)
  - Maternal exposure during pregnancy [Recovered/Resolved]
